FAERS Safety Report 8576260-2 (Version None)
Quarter: 2012Q3

REPORT INFORMATION
  Report Type: 
  Country: None (occurrence: None)
  Receive Date: 20120807
  Receipt Date: 20120802
  Transmission Date: 20120928
  Serious: Yes (Other)
  Sender: FDA-Public Use
  Company Number: PHEH2012US015165

PATIENT
  Sex: Male

DRUGS (11)
  1. POTASSIUM CL [Concomitant]
     Dosage: UNK UKN, UNK
  2. ACYCLOVIR [Concomitant]
     Dosage: UNK UKN, UNK
  3. METFORMIN HYDROCHLORIDE [Concomitant]
     Dosage: UNK UKN, UNK
  4. OXYCODONE HCL [Concomitant]
     Dosage: UNK UKN, UNK
  5. LORAZEPAM [Concomitant]
     Dosage: UNK UKN, UNK
  6. LISINOPRIL [Concomitant]
     Dosage: UNK UKN, UNK
  7. DEXAMETHASONE [Concomitant]
     Dosage: UNK UKN, UNK
  8. CIPROFLOXACIN HCL [Concomitant]
     Dosage: UNK UKN, UNK
  9. DIOVAN [Suspect]
     Indication: HYPERTENSION
     Dosage: 1 DF (80/12.5  MG)
     Route: 048
  10. ALLOPURINOL [Concomitant]
     Dosage: UNK UKN, UNK
  11. OMEPRAZOLE [Concomitant]
     Dosage: UNK UKN, UNK

REACTIONS (1)
  - BRAIN NEOPLASM MALIGNANT [None]
